FAERS Safety Report 26107842 (Version 1)
Quarter: 2025Q4

REPORT INFORMATION
  Report Type: Spontaneous
  Country: EU (occurrence: EU)
  Receive Date: 20251201
  Receipt Date: 20251201
  Transmission Date: 20260117
  Serious: Yes (Hospitalization)
  Sender: MYLAN
  Company Number: EU-MYLANLABS-2025M1099361

PATIENT
  Age: 2 Year
  Sex: Female

DRUGS (4)
  1. TAMOXIFEN [Suspect]
     Active Substance: TAMOXIFEN
     Indication: Product used for unknown indication
     Dosage: UNK, COULD BE APPROXIMATELY 31?37 MG, WITH A MINIMUM OF TWO TABLETS
  2. TAMOXIFEN [Suspect]
     Active Substance: TAMOXIFEN
     Dosage: UNK, COULD BE APPROXIMATELY 31?37 MG, WITH A MINIMUM OF TWO TABLETS
     Route: 048
  3. TAMOXIFEN [Suspect]
     Active Substance: TAMOXIFEN
     Dosage: UNK, COULD BE APPROXIMATELY 31?37 MG, WITH A MINIMUM OF TWO TABLETS
     Route: 048
  4. TAMOXIFEN [Suspect]
     Active Substance: TAMOXIFEN
     Dosage: UNK, COULD BE APPROXIMATELY 31?37 MG, WITH A MINIMUM OF TWO TABLETS

REACTIONS (4)
  - Electrocardiogram QT prolonged [Recovered/Resolved]
  - Toxicity to various agents [Recovered/Resolved]
  - Accidental exposure to product by child [Recovered/Resolved]
  - Accidental overdose [Recovered/Resolved]
